FAERS Safety Report 17214307 (Version 1)
Quarter: 2020Q1

REPORT INFORMATION
  Report Type: Spontaneous
  Country: AU (occurrence: AU)
  Receive Date: 20191228
  Receipt Date: 20191228
  Transmission Date: 20200409
  Serious: Yes (Disabling)
  Sender: FDA-Public Use
  Company Number: None

PATIENT
  Age: 62 Year
  Sex: Female
  Weight: 81 kg

DRUGS (12)
  1. VITAMIN B12 [Concomitant]
     Active Substance: CYANOCOBALAMIN
  2. VITAMIN D [Concomitant]
     Active Substance: VITAMIN D NOS
  3. MAXIDEX EYE DROPS [Concomitant]
  4. VITAMIN C [Concomitant]
     Active Substance: ASCORBIC ACID
  5. TIMOPTOL XE EYE DROPS [Concomitant]
  6. APO CIPROFLOX [Suspect]
     Active Substance: CIPROFLOXACIN HYDROCHLORIDE
     Indication: ESCHERICHIA INFECTION
     Dosage: ?          QUANTITY:1 TABLET(S);?
     Route: 048
     Dates: start: 20161222, end: 20170111
  7. TOXAPREVENT MEDI PLUS [Concomitant]
  8. PROTANDIM [Concomitant]
     Active Substance: DIETARY SUPPLEMENT
  9. ASHWAGANDA [Concomitant]
  10. MAGNESIUM CALMX [Concomitant]
  11. PROTHIEDEN 50 MG [Concomitant]
  12. SPIRULINA [Concomitant]
     Active Substance: SPIRULINA

REACTIONS (14)
  - Decreased appetite [None]
  - Depersonalisation/derealisation disorder [None]
  - Vitreous detachment [None]
  - Balance disorder [None]
  - Muscle spasms [None]
  - Dyskinesia [None]
  - Muscle twitching [None]
  - Impaired work ability [None]
  - Fatigue [None]
  - Vision blurred [None]
  - Tinnitus [None]
  - Ill-defined disorder [None]
  - Asthenia [None]
  - Dystonia [None]

NARRATIVE: CASE EVENT DATE: 20180111
